FAERS Safety Report 4959281-8 (Version None)
Quarter: 2006Q1

REPORT INFORMATION
  Report Type: 
  Country: None (occurrence: None)
  Receive Date: 20060331
  Receipt Date: 20060322
  Transmission Date: 20060701
  Serious: Yes (Other)
  Sender: FDA-Public Use
  Company Number: US-JNJFOC-20060305740

PATIENT
  Sex: Female
  Weight: 64.86 kg

DRUGS (15)
  1. REMICADE [Suspect]
     Route: 042
  2. REMICADE [Suspect]
     Indication: RHEUMATOID ARTHRITIS
     Route: 042
  3. METHOTREXATE [Concomitant]
  4. ZOCOR [Concomitant]
  5. PREMARIN [Concomitant]
  6. CELEBREX [Concomitant]
  7. ACTONEL [Concomitant]
  8. ASCORBIC ACID [Concomitant]
  9. CALTRATE [Concomitant]
  10. MULTIVITE [Concomitant]
  11. MULTIVITE [Concomitant]
  12. MULTIVITE [Concomitant]
  13. MULTIVITE [Concomitant]
  14. MULTIVITE [Concomitant]
  15. MULTIVITE [Concomitant]

REACTIONS (6)
  - ABDOMINAL PAIN [None]
  - METASTASES TO GALLBLADDER [None]
  - METASTASES TO GASTROINTESTINAL TRACT [None]
  - METASTASES TO LARGE INTESTINE [None]
  - METASTASES TO SMALL INTESTINE [None]
  - METASTATIC NEOPLASM [None]
